FAERS Safety Report 9448206 (Version 15)
Quarter: 2018Q3

REPORT INFORMATION
  Report Type: Report from Study
  Country: BR (occurrence: BR)
  Receive Date: 20130808
  Receipt Date: 20180806
  Transmission Date: 20181010
  Serious: Yes (Life-Threatening, Hospitalization, Other)
  Sender: FDA-Public Use
  Company Number: PHHY2013BR084221

PATIENT
  Age: 67 Year
  Sex: Female
  Weight: 72.48 kg

DRUGS (16)
  1. CALCIUM [Suspect]
     Active Substance: CALCIUM
     Indication: OSTEOPOROSIS
     Dosage: UNK UKN, BID
     Route: 065
  2. SANDOSTATIN LAR DEPOT [Suspect]
     Active Substance: OCTREOTIDE ACETATE
     Dosage: 30 MG, EVERY 2 MONTHS
     Route: 030
  3. LOSARTAN. [Concomitant]
     Active Substance: LOSARTAN
     Dosage: UNK UKN, BID
     Route: 065
  4. HYDROCHLOROTHIAZIDE. [Concomitant]
     Active Substance: HYDROCHLOROTHIAZIDE
     Indication: HYPERTENSION
     Dosage: 1 DF, QD
     Route: 048
     Dates: start: 201301
  5. SANDOSTATIN LAR DEPOT [Suspect]
     Active Substance: OCTREOTIDE ACETATE
     Indication: ACROMEGALY
     Dosage: 10 MG, QMO
     Route: 030
     Dates: start: 2002
  6. SANDOSTATIN LAR DEPOT [Suspect]
     Active Substance: OCTREOTIDE ACETATE
     Dosage: 30 MG, Q2MO, EVERY 60 DAYS
     Route: 030
     Dates: start: 200311
  7. DOSTINEX [Suspect]
     Active Substance: CABERGOLINE
     Indication: THYROID DISORDER
     Dosage: UNK OT, BID
     Route: 065
  8. SANDOSTATIN LAR DEPOT [Suspect]
     Active Substance: OCTREOTIDE ACETATE
     Dosage: 30 MG, EVERY 45 DAYS
     Route: 030
  9. SANDOSTATIN LAR DEPOT [Suspect]
     Active Substance: OCTREOTIDE ACETATE
     Dosage: 30 MG, EVERY 45 DAYS
     Route: 030
     Dates: end: 201507
  10. SANDOSTATIN LAR DEPOT [Suspect]
     Active Substance: OCTREOTIDE ACETATE
     Dosage: 10 MG, QMO
     Route: 030
  11. SANDOSTATIN LAR DEPOT [Suspect]
     Active Substance: OCTREOTIDE ACETATE
     Dosage: 30 MG, QMO
     Route: 030
  12. SANDOSTATIN LAR DEPOT [Suspect]
     Active Substance: OCTREOTIDE ACETATE
     Dosage: 20 MG, QMO
     Route: 030
  13. SANDOSTATIN LAR DEPOT [Suspect]
     Active Substance: OCTREOTIDE ACETATE
     Dosage: 20 MG, QMO
     Route: 030
  14. LOSARTAN. [Concomitant]
     Active Substance: LOSARTAN
     Indication: HYPERTENSION
     Dosage: 1 DF, QD
     Route: 065
     Dates: start: 201301
  15. ALENDRONATE [Concomitant]
     Active Substance: ALENDRONATE SODIUM
     Indication: OSTEOPOROSIS
     Dosage: UNK UKN, QW
     Route: 065
  16. AAS [Concomitant]
     Active Substance: ASPIRIN
     Indication: PRODUCT USED FOR UNKNOWN INDICATION
     Dosage: UNK UKN, QD
     Route: 065

REACTIONS (58)
  - Insomnia [Unknown]
  - Erysipelas [Unknown]
  - Asthenia [Unknown]
  - Disease progression [Not Recovered/Not Resolved]
  - Osteoarthritis [Unknown]
  - Pallor [Unknown]
  - Heart rate increased [Recovered/Resolved]
  - Thyroid mass [Not Recovered/Not Resolved]
  - Dizziness [Unknown]
  - Renal disorder [Unknown]
  - Cardiovascular disorder [Unknown]
  - Arthralgia [Unknown]
  - Bone disorder [Unknown]
  - Swelling [Unknown]
  - Anxiety [Unknown]
  - Abdominal discomfort [Unknown]
  - Fall [Unknown]
  - Joint swelling [Unknown]
  - Diabetes mellitus [Unknown]
  - Vein disorder [Unknown]
  - Pain in extremity [Unknown]
  - Crying [Unknown]
  - Drug ineffective [Unknown]
  - Feeling abnormal [Unknown]
  - Erythema [Unknown]
  - Neoplasm [Unknown]
  - Low density lipoprotein increased [Unknown]
  - Weight increased [Unknown]
  - Malaise [Unknown]
  - Peripheral swelling [Unknown]
  - Fatigue [Unknown]
  - Nervousness [Unknown]
  - Vein collapse [Unknown]
  - Anaemia [Unknown]
  - Arrhythmia [Recovered/Resolved]
  - Tooth disorder [Recovered/Resolved]
  - Blood pressure increased [Unknown]
  - Thyroid disorder [Unknown]
  - Blood cholesterol increased [Recovered/Resolved]
  - Osteoporosis [Recovered/Resolved]
  - Varicose vein [Recovered/Resolved]
  - Weight decreased [Unknown]
  - Emotional disorder [Recovered/Resolved]
  - Oral pain [Not Recovered/Not Resolved]
  - Memory impairment [Unknown]
  - Condition aggravated [Unknown]
  - Varices oesophageal [Unknown]
  - Hormone level abnormal [Unknown]
  - Paralysis [Recovering/Resolving]
  - Gait disturbance [Recovering/Resolving]
  - Terminal state [Unknown]
  - Arrhythmia [Recovered/Resolved]
  - Blood pressure decreased [Recovering/Resolving]
  - Depression [Unknown]
  - Irritability [Recovered/Resolved]
  - Sluggishness [Unknown]
  - Dyspnoea [Unknown]
  - Inappropriate schedule of drug administration [Unknown]

NARRATIVE: CASE EVENT DATE: 201308
